FAERS Safety Report 20595598 (Version 1)
Quarter: 2022Q1

REPORT INFORMATION
  Report Type: Spontaneous
  Country: US (occurrence: None)
  Receive Date: 20220314
  Receipt Date: 20220314
  Transmission Date: 20220423
  Serious: Yes (unspecified)
  Sender: FDA-Public Use
  Company Number: None

PATIENT
  Age: 46 Year
  Sex: Female

DRUGS (1)
  1. SELSUN BLUE MEDICATED [Suspect]
     Active Substance: SELENIUM SULFIDE
     Indication: Fungal infection
     Dosage: FREQUENCY : AT BEDTIME;?
     Route: 061
     Dates: start: 20220314, end: 20220314

REACTIONS (3)
  - Hypersensitivity [None]
  - Skin ulcer [None]
  - Chemical burn of skin [None]

NARRATIVE: CASE EVENT DATE: 20220314
